FAERS Safety Report 18899770 (Version 1)
Quarter: 2021Q1

REPORT INFORMATION
  Report Type: Report from Study
  Country: CA (occurrence: CA)
  Receive Date: 20210216
  Receipt Date: 20210216
  Transmission Date: 20210420
  Serious: Yes (Death)
  Sender: FDA-Public Use
  Company Number: CA-PFIZER INC-2021111053

PATIENT
  Sex: Female

DRUGS (23)
  1. ACETAMINOPHEN. [Concomitant]
     Active Substance: ACETAMINOPHEN
  2. HYDROXYCHLOROQUINE [Concomitant]
     Active Substance: HYDROXYCHLOROQUINE
  3. LEVEMIR [Concomitant]
     Active Substance: INSULIN DETEMIR
  4. METHYLPREDNISOLONE. [Concomitant]
     Active Substance: METHYLPREDNISOLONE
  5. APO?PREDNISONE [Concomitant]
     Active Substance: PREDNISONE
  6. QUINAPRIL HYDROCHLORIDE. [Concomitant]
     Active Substance: QUINAPRIL HYDROCHLORIDE
  7. ZINC. [Concomitant]
     Active Substance: ZINC
  8. MAGNESIUM [Concomitant]
     Active Substance: MAGNESIUM
  9. NABILONE [Concomitant]
     Active Substance: NABILONE
  10. PMS?CETIRIZINE [Concomitant]
     Active Substance: CETIRIZINE HYDROCHLORIDE
  11. SOLU?CORTEF [Concomitant]
     Active Substance: HYDROCORTISONE SODIUM SUCCINATE
  12. RITUXIMAB. [Suspect]
     Active Substance: RITUXIMAB
     Indication: RHEUMATOID ARTHRITIS
     Dosage: 1000 MG, 1 EVERY 2 WEEKS
     Route: 042
  13. LACTULOSE. [Concomitant]
     Active Substance: LACTULOSE
  14. MYCOPHENOLATE MOFETIL. [Concomitant]
     Active Substance: MYCOPHENOLATE MOFETIL
  15. APO?ZOPICLONE [Concomitant]
     Active Substance: ZOPICLONE
  16. APO?ATORVASTATIN [Concomitant]
     Active Substance: ATORVASTATIN
  17. APO?AZATHIOPRINE [Concomitant]
     Active Substance: AZATHIOPRINE
  18. LACTAID [Concomitant]
     Active Substance: LACTASE
  19. METHADONE [Concomitant]
     Active Substance: METHADONE HYDROCHLORIDE
  20. CALCIUM [Concomitant]
     Active Substance: CALCIUM
  21. DIPHENHYDRAMINE. [Concomitant]
     Active Substance: DIPHENHYDRAMINE
  22. NOVORAPID [Concomitant]
     Active Substance: INSULIN ASPART
  23. RISEDRONATE SODIUM. [Concomitant]
     Active Substance: RISEDRONATE SODIUM

REACTIONS (1)
  - Death [Fatal]
